FAERS Safety Report 7086548-2 (Version None)
Quarter: 2010Q4

REPORT INFORMATION
  Report Type: 
  Country: None (occurrence: None)
  Receive Date: 20101105
  Receipt Date: 20101026
  Transmission Date: 20110411
  Serious: Yes (Hospitalization)
  Sender: FDA-Public Use
  Company Number: FR-BAYER-201044264GPV

PATIENT
  Age: 52 Year
  Sex: Male

DRUGS (11)
  1. CIFLOX [Suspect]
     Indication: SEPSIS
     Route: 048
     Dates: start: 20100824, end: 20100828
  2. ORBENINE [Suspect]
     Indication: SEPSIS
     Dosage: 1.5 G / 4 DAYS
     Route: 048
     Dates: start: 20100813, end: 20100828
  3. FUCIDINE [Suspect]
     Indication: SEPSIS
     Route: 048
     Dates: start: 20100819, end: 20100823
  4. NEXIUM [Suspect]
     Indication: PRODUCT USED FOR UNKNOWN INDICATION
     Route: 048
     Dates: start: 20100822, end: 20100904
  5. TRIFLUCAN [Suspect]
     Indication: SEPSIS
     Route: 048
     Dates: start: 20100830, end: 20100904
  6. PREVISCAN [Concomitant]
     Route: 065
  7. NEORAL [Concomitant]
     Route: 065
  8. PREDNISOLONE [Concomitant]
     Route: 065
  9. MIMPARA [CINACALCET] [Concomitant]
     Route: 065
  10. IMUREL [Concomitant]
     Route: 065
  11. ROCALTROL [Concomitant]
     Route: 065

REACTIONS (2)
  - HAEMOLYSIS [None]
  - PANCYTOPENIA [None]
